FAERS Safety Report 25664963 (Version 3)
Quarter: 2025Q3

REPORT INFORMATION
  Report Type: Spontaneous
  Country: US (occurrence: US)
  Receive Date: 20250811
  Receipt Date: 20250919
  Transmission Date: 20251021
  Serious: No
  Sender: LUPIN
  Company Number: US-LUPIN PHARMACEUTICALS INC.-2025-06939

PATIENT
  Age: 60 Year
  Weight: 56.689 kg

DRUGS (1)
  1. TIOTROPIUM BROMIDE [Suspect]
     Active Substance: TIOTROPIUM BROMIDE
     Indication: Asthma
     Dosage: 1 DOSAGE FORM, QD

REACTIONS (5)
  - Wrong technique in device usage process [Unknown]
  - Device malfunction [Unknown]
  - Device mechanical issue [Unknown]
  - Device breakage [Unknown]
  - No adverse event [Unknown]
